FAERS Safety Report 11597869 (Version 2)
Quarter: 2015Q4

REPORT INFORMATION
  Report Type: Spontaneous
  Country: US (occurrence: US)
  Receive Date: 20151006
  Receipt Date: 20151113
  Transmission Date: 20160304
  Serious: No
  Sender: FDA-Public Use
  Company Number: US-JNJFOC-20150907839

PATIENT

DRUGS (1)
  1. LEVAQUIN [Suspect]
     Active Substance: LEVOFLOXACIN
     Indication: BLADDER INJURY
     Route: 065
     Dates: start: 20090318

REACTIONS (8)
  - Hypersensitivity [Unknown]
  - Muscle contracture [Unknown]
  - Swelling face [Unknown]
  - Rash [Unknown]
  - Hypertension [Unknown]
  - Tendon pain [Unknown]
  - Tendon injury [Unknown]
  - Hypoaesthesia [Unknown]
